FAERS Safety Report 4325951-8 (Version None)
Quarter: 2004Q1

REPORT INFORMATION
  Report Type: 
  Country: None (occurrence: None)
  Receive Date: 20040323
  Receipt Date: 20040315
  Transmission Date: 20041129
  Serious: Yes (Other)
  Sender: FDA-Public Use
  Company Number: 2004-03-0978

PATIENT
  Age: 23 Month
  Sex: Male

DRUGS (3)
  1. NASONEX [Suspect]
     Dosage: NASAL SPRAY
     Route: 045
  2. ZYRTEC [Suspect]
  3. TYZINE (TETRAHYDROZOLINE HYDROCHLORIDE) [Suspect]

REACTIONS (2)
  - ALANINE AMINOTRANSFERASE INCREASED [None]
  - ASPARTATE AMINOTRANSFERASE INCREASED [None]
